FAERS Safety Report 21348168 (Version 1)
Quarter: 2022Q3

REPORT INFORMATION
  Report Type: Spontaneous
  Country: US (occurrence: None)
  Receive Date: 20220916
  Receipt Date: 20220916
  Transmission Date: 20221027
  Serious: Yes (Hospitalization)
  Sender: FDA-Public Use
  Company Number: None

PATIENT
  Age: 70 Year
  Sex: Female
  Weight: 85.73 kg

DRUGS (18)
  1. CAPECITABINE [Suspect]
     Active Substance: CAPECITABINE
     Indication: Breast cancer female
     Dates: start: 20220729, end: 20220913
  2. ALENDRONATE SODIUM [Concomitant]
     Active Substance: ALENDRONATE SODIUM
  3. APPLE CIDER VINEGAR [Concomitant]
     Active Substance: APPLE CIDER VINEGAR
  4. BENADRYL ALLERGY [Concomitant]
     Active Substance: DIPHENHYDRAMINE HYDROCHLORIDE
  5. BIOTIN [Concomitant]
     Active Substance: BIOTIN
  6. CALTRATE 600+D [Concomitant]
  7. CLARITIN [Concomitant]
     Active Substance: LORATADINE
  8. FLAXSEED [Concomitant]
     Active Substance: FLAX SEED
  9. FLUTICASONE [Concomitant]
     Active Substance: FLUTICASONE
  10. PROPIONATE [Concomitant]
  11. VITAMIN D3 [Concomitant]
     Active Substance: CHOLECALCIFEROL
  12. LATANOPROST [Concomitant]
     Active Substance: LATANOPROST
  13. Ophthalmic [Concomitant]
  14. MELATONIN [Concomitant]
     Active Substance: MELATONIN
  15. Multivitamin Adults [Concomitant]
  16. Ocuvite Adult 50 [Concomitant]
  17. Sensitive Eyes [Concomitant]
  18. STOOL SOFTENER (DOCUSATE) [Concomitant]
     Active Substance: DOCUSATE

REACTIONS (1)
  - Pulmonary oedema [None]
